FAERS Safety Report 9646242 (Version 1)
Quarter: 2013Q4

REPORT INFORMATION
  Report Type: Spontaneous
  Country: FR (occurrence: None)
  Receive Date: 20131024
  Receipt Date: 20131024
  Transmission Date: 20140711
  Serious: Yes (Hospitalization)
  Sender: FDA-Public Use
  Company Number: 1922709

PATIENT
  Age: 60 Year
  Sex: Female

DRUGS (2)
  1. CARBOPLATIN [Suspect]
     Indication: OVARIAN CANCER
     Route: 041
     Dates: start: 20100705, end: 20100705
  2. OVARIAN CARCINOMA [Concomitant]

REACTIONS (5)
  - Infusion related reaction [None]
  - Flushing [None]
  - Generalised erythema [None]
  - Malaise [None]
  - Tongue oedema [None]
